FAERS Safety Report 14351439 (Version 1)
Quarter: 2018Q1

REPORT INFORMATION
  Report Type: Spontaneous
  Country: TR (occurrence: TR)
  Receive Date: 20180104
  Receipt Date: 20180104
  Transmission Date: 20180509
  Serious: Yes (Other)
  Sender: FDA-Public Use
  Company Number: TR-ELI_LILLY_AND_COMPANY-TR201712012534

PATIENT
  Age: 62 Year
  Sex: Female

DRUGS (2)
  1. ATARAX [Concomitant]
     Active Substance: HYDROXYZINE HYDROCHLORIDE
     Indication: STRESS
  2. BASAGLAR [Suspect]
     Active Substance: INSULIN GLARGINE
     Indication: PRODUCT USED FOR UNKNOWN INDICATION
     Dosage: UNK, UNKNOWN
     Route: 065
     Dates: start: 201706

REACTIONS (7)
  - Pericarditis [Unknown]
  - Breast discomfort [Unknown]
  - Blood glucose increased [Unknown]
  - Influenza [Unknown]
  - Asthenia [Unknown]
  - Hypoaesthesia [Unknown]
  - Stress [Unknown]
